FAERS Safety Report 21681192 (Version 2)
Quarter: 2022Q4

REPORT INFORMATION
  Report Type: Spontaneous
  Country: US (occurrence: US)
  Receive Date: 20221205
  Receipt Date: 20221213
  Transmission Date: 20230112
  Serious: Yes (Other)
  Sender: FDA-Public Use
  Company Number: US-009507513-2211USA009063

PATIENT
  Age: 78 Year
  Sex: Male

DRUGS (4)
  1. TICE BCG [Suspect]
     Active Substance: BACILLUS CALMETTE-GUERIN SUBSTRAIN TICE LIVE ANTIGEN
     Indication: Bladder cancer
     Dosage: 6 WEEKLY TREATMENTS
     Route: 043
     Dates: start: 202203, end: 202208
  2. MORNIFLUMATE [Concomitant]
     Active Substance: MORNIFLUMATE
     Dosage: UNK
  3. LISINOPRIL [Concomitant]
     Active Substance: LISINOPRIL
     Dosage: UNK
  4. ROSUVASTATIN [Concomitant]
     Active Substance: ROSUVASTATIN
     Dosage: UNK

REACTIONS (3)
  - Bladder cancer recurrent [Not Recovered/Not Resolved]
  - Transurethral prostatectomy [Unknown]
  - Product availability issue [Unknown]

NARRATIVE: CASE EVENT DATE: 20220901
